FAERS Safety Report 7365651-3 (Version None)
Quarter: 2011Q1

REPORT INFORMATION
  Report Type: 
  Country: None (occurrence: None)
  Receive Date: 20110316
  Receipt Date: 20110316
  Transmission Date: 20110831
  Serious: Yes (Hospitalization)
  Sender: FDA-Public Use
  Company Number: None

PATIENT
  Age: 63 Year
  Sex: Male
  Weight: 74 kg

DRUGS (1)
  1. PIPERACILLIN AND TAZOBACTAM [Suspect]
     Indication: CELLULITIS
     Dosage: 3.375 GM QID IV
     Route: 042
     Dates: start: 20100901, end: 20100904

REACTIONS (5)
  - RENAL FAILURE ACUTE [None]
  - TUBULOINTERSTITIAL NEPHRITIS [None]
  - RESPIRATORY FAILURE [None]
  - EOSINOPHILIA [None]
  - PNEUMONIA STAPHYLOCOCCAL [None]
